FAERS Safety Report 15540023 (Version 2)
Quarter: 2019Q1

REPORT INFORMATION
  Report Type: Spontaneous
  Country: US (occurrence: US)
  Receive Date: 20181023
  Receipt Date: 20190202
  Transmission Date: 20190417
  Serious: No
  Sender: FDA-Public Use
  Company Number: US-MICRO LABS LIMITED-ML2018-02127

PATIENT
  Age: 46 Year
  Sex: Female
  Weight: 99.88 kg

DRUGS (4)
  1. KETOTIFEN [Concomitant]
     Active Substance: KETOTIFEN
     Indication: MAST CELL ACTIVATION SYNDROME
  2. CROMOLYN SODIUM ORAL SOLUTION 100 MG/5 ML [Suspect]
     Active Substance: CROMOLYN SODIUM
     Indication: MAST CELL ACTIVATION SYNDROME
     Dosage: 100MG/5ML; 2 AMPULES 4 TIMES A DAY. SO, A TOTAL OF 8 PER DAY
     Route: 048
     Dates: start: 2016
  3. MONTELUKAST SODIUM. [Concomitant]
     Active Substance: MONTELUKAST SODIUM
     Dosage: 3 PACKS PER DAY.
  4. KETOCONAZOLE. [Concomitant]
     Active Substance: KETOCONAZOLE

REACTIONS (3)
  - Drug effect decreased [Unknown]
  - Malaise [Unknown]
  - Nausea [Unknown]

NARRATIVE: CASE EVENT DATE: 201807
